FAERS Safety Report 14128252 (Version 1)
Quarter: 2017Q4

REPORT INFORMATION
  Report Type: Spontaneous
  Country: US (occurrence: US)
  Receive Date: 20171025
  Receipt Date: 20171025
  Transmission Date: 20180321
  Serious: Yes (Disabling)
  Sender: FDA-Public Use
  Company Number: None

PATIENT
  Age: 72 Year
  Sex: Female
  Weight: 67.5 kg

DRUGS (9)
  1. MAGNESIUM [Concomitant]
     Active Substance: MAGNESIUM
  2. NORVASC [Concomitant]
     Active Substance: AMLODIPINE BESYLATE
  3. AMITIZA [Concomitant]
     Active Substance: LUBIPROSTONE
  4. ZINC. [Concomitant]
     Active Substance: ZINC
  5. VITAMIN D [Concomitant]
     Active Substance: CHOLECALCIFEROL
  6. NIACIN. [Concomitant]
     Active Substance: NIACIN
  7. RECLAST [Suspect]
     Active Substance: ZOLEDRONIC ACID
     Indication: OSTEOPOROSIS
     Dosage: ?          OTHER FREQUENCY:ONE TIME INFUSION;?
     Route: 042
     Dates: start: 20170525, end: 20170525
  8. LEVOTHROXINE [Concomitant]
     Active Substance: LEVOTHYROXINE
  9. FOLIC ACID. [Concomitant]
     Active Substance: FOLIC ACID

REACTIONS (9)
  - Bone pain [None]
  - Myalgia [None]
  - White blood cell count decreased [None]
  - Fatigue [None]
  - Pyrexia [None]
  - Hypersensitivity [None]
  - Influenza like illness [None]
  - Differential white blood cell count abnormal [None]
  - Infusion related reaction [None]

NARRATIVE: CASE EVENT DATE: 20170526
